FAERS Safety Report 7629472-6 (Version None)
Quarter: 2011Q3

REPORT INFORMATION
  Report Type: 
  Country: None (occurrence: None)
  Receive Date: 20110722
  Receipt Date: 20110714
  Transmission Date: 20111222
  Serious: Yes (Hospitalization, Other)
  Sender: FDA-Public Use
  Company Number: US-BAYER-201034928NA

PATIENT
  Age: 16 Year
  Sex: Female

DRUGS (3)
  1. MOTRIN [Concomitant]
  2. IBUPROFEN (ADVIL) [Concomitant]
  3. YASMIN [Suspect]
     Dosage: UNK
     Dates: start: 20070601, end: 20081201

REACTIONS (7)
  - THROMBOSIS [None]
  - AMNESIA [None]
  - DIZZINESS [None]
  - CHEST PAIN [None]
  - PAIN [None]
  - PULMONARY EMBOLISM [None]
  - DYSPNOEA [None]
